FAERS Safety Report 6438633-3 (Version None)
Quarter: 2009Q4

REPORT INFORMATION
  Report Type: 
  Country: None (occurrence: None)
  Receive Date: 20091112
  Receipt Date: 20091030
  Transmission Date: 20100525
  Serious: Yes (Other)
  Sender: FDA-Public Use
  Company Number: DK-MYLANLABS-2009S1018951

PATIENT
  Sex: Male

DRUGS (1)
  1. PROPRANOLOL [Suspect]
     Indication: ATAXIA
     Route: 065
     Dates: start: 20070703, end: 20080131

REACTIONS (1)
  - ISCHAEMIA [None]
